FAERS Safety Report 8622570-X (Version None)
Quarter: 2012Q3

REPORT INFORMATION
  Report Type: 
  Country: None (occurrence: None)
  Receive Date: 20120809
  Receipt Date: 20120727
  Transmission Date: 20120928
  Serious: Yes (Hospitalization, Other)
  Sender: FDA-Public Use
  Company Number: CIP11002317

PATIENT
  Age: 63 Year
  Sex: Female

DRUGS (48)
  1. OXYGEN (OXYGEN) [Concomitant]
  2. ASPIRIN [Concomitant]
  3. FLAXSEED OIL (LINUM USITATISSIMUM SEED OIL) [Concomitant]
  4. HYDROCODONE BITARTRATE AND ACETAMINOPHEN (HYDROCODONE BITARTRATE, PARA [Concomitant]
  5. ZETIA [Concomitant]
  6. WELCHOL [Concomitant]
  7. FUROSEMIDE [Concomitant]
  8. OMEGA-3-ACID ETHYL ESTERS (LOVAZA) [Concomitant]
  9. BLACK COHOSH /01456805/ (CIMICIFUGA RACEMOSA ROOT) [Concomitant]
  10. IMIPRAMINE PAMOATE (IMIPRAMINE EMBONATE) [Concomitant]
  11. METROGEL [Concomitant]
  12. ACTONEL [Suspect]
     Indication: OSTEOPENIA
     Dosage: 35 MG, 1/WEEK, ORAL
     Route: 048
     Dates: start: 20021014, end: 20100101
  13. ALL OTHER THERAPEUTIC PRODUCTS [Concomitant]
  14. VITAMIN B-12 [Concomitant]
  15. NORTRIPTYLINE HCL [Concomitant]
  16. INDERAL [Concomitant]
  17. KLOR-CON [Concomitant]
  18. NIASPAN [Concomitant]
  19. DEMEROL [Concomitant]
  20. MACRODANTIN [Concomitant]
  21. VITAMIN B6 [Concomitant]
  22. CELEBREX [Concomitant]
  23. CRESTOR [Concomitant]
  24. MICARDIS [Concomitant]
  25. DARVOCET [Concomitant]
  26. CINNAMON /01647501/ (CINNAMOMUM VERUM) [Concomitant]
  27. BUTALBITAL W/CAFFEINE/CODEINE/PARACETAMOL (BUTALBITAL, CAFFEINE, CODEI [Concomitant]
  28. PROPOXYPHENE NAPSYLATE W/ACETAMINOPHEN (DEXTROPROPOXYPHENE NAPSILATE, [Concomitant]
  29. PROAIR (FLUTICASONE PROPIONATE) [Concomitant]
  30. VIVELLE-DOT [Concomitant]
  31. LEXAPRO [Concomitant]
  32. CYMBALTA [Concomitant]
  33. ANTIBIOTICS [Concomitant]
  34. CITRACAL +D /01438101/ (CALCIUM CITRATE, ERGOCALCIFEROL) [Concomitant]
  35. GLUCOSAMINE (GLUCOSAMINE) [Concomitant]
  36. CRANBERRY /01512301/ (VACCINIUM MACROCARPON) [Concomitant]
  37. DESYREL [Concomitant]
  38. ACIDOPHILUS (LACTOBACILLUS ACIDOPHILUS) [Concomitant]
  39. CHOLESTYRAMINE (COLESTYRAMINE) [Concomitant]
  40. MOBIC [Concomitant]
  41. CLONAZEPAM [Concomitant]
  42. VITAMINS NOS (VITAMINS NOS) [Concomitant]
  43. FOLIC ACID [Concomitant]
  44. LEVAQUIN [Concomitant]
  45. IBUPROFEN [Concomitant]
  46. DESERIL /00012301/ (METHYSERGIDE) [Concomitant]
  47. VAGIFEM [Concomitant]
  48. SULFAMETHOXAZOLE AND TRIMETHOPRIM [Concomitant]

REACTIONS (14)
  - FEMUR FRACTURE [None]
  - CYSTITIS [None]
  - BALANCE DISORDER [None]
  - FALL [None]
  - ATYPICAL FEMUR FRACTURE [None]
  - NEPHROLITHIASIS [None]
  - TENDONITIS [None]
  - VAGINAL INFECTION [None]
  - MIGRAINE [None]
  - ARTIFICIAL CROWN PROCEDURE [None]
  - PAIN IN EXTREMITY [None]
  - STRESS FRACTURE [None]
  - FOOT FRACTURE [None]
  - MYALGIA [None]
